FAERS Safety Report 9492935 (Version 1)
Quarter: 2013Q3

REPORT INFORMATION
  Report Type: Spontaneous
  Country: GB (occurrence: GB)
  Receive Date: 20130902
  Receipt Date: 20130902
  Transmission Date: 20140515
  Serious: Yes (Death)
  Sender: FDA-Public Use
  Company Number: GB-AMGEN-GBRSP2013061283

PATIENT
  Age: 11 Year
  Sex: Male
  Weight: 38 kg

DRUGS (6)
  1. ENBREL [Suspect]
     Indication: JUVENILE IDIOPATHIC ARTHRITIS
     Dosage: 20 MG, 2X/WEEK
     Route: 058
     Dates: start: 20120201
  2. SERETIDE [Concomitant]
     Dosage: 2 DF, BID
  3. MONTELUKAST [Concomitant]
     Dosage: 5 MG, UNK AT NIGHT
  4. CETIRIZINE [Concomitant]
     Dosage: 10 MG, UNK
  5. SALBUTAMOL [Concomitant]
     Dosage: UNK
     Route: 055
  6. PREDNISOLONE [Concomitant]
     Dosage: UNK

REACTIONS (2)
  - Hypersensitivity [Fatal]
  - Dyspnoea [Not Recovered/Not Resolved]
